FAERS Safety Report 6365529-8 (Version None)
Quarter: 2009Q3

REPORT INFORMATION
  Report Type: 
  Country: None (occurrence: None)
  Receive Date: 20090919
  Receipt Date: 20090814
  Transmission Date: 20100115
  Serious: No
  Sender: FDA-Public Use
  Company Number: US-ABBOTT-09P-163-0592104-00

PATIENT
  Sex: Female
  Weight: 81.72 kg

DRUGS (23)
  1. HUMIRA [Suspect]
     Indication: RHEUMATOID ARTHRITIS
  2. METHOTREXATE [Suspect]
     Indication: RHEUMATOID ARTHRITIS
  3. AUGMENTIN [Suspect]
     Indication: SINUSITIS
     Dates: start: 20090801
  4. AUGMENTIN [Suspect]
  5. ALENDRONATE SODIUM [Concomitant]
     Indication: OSTEOPOROSIS
  6. ALTACE [Concomitant]
     Indication: MYOCARDIAL INFARCTION
  7. ALTACE [Concomitant]
     Indication: CARDIAC DISORDER
  8. ATENOLOL [Concomitant]
     Indication: PROPHYLAXIS
  9. ATENOLOL [Concomitant]
     Indication: MYOCARDIAL INFARCTION
  10. SIMVASTATIN [Concomitant]
     Indication: BLOOD CHOLESTEROL INCREASED
  11. FOLIC ACID [Concomitant]
     Indication: DRUG USE FOR UNKNOWN INDICATION
  12. PROTONIX [Concomitant]
     Indication: GASTRIC PH DECREASED
  13. LEVOTHYROXINE SODIUM [Concomitant]
     Indication: AUTOIMMUNE THYROIDITIS
  14. ROPINIROLE [Concomitant]
     Indication: RESTLESS LEGS SYNDROME
  15. CYCLOBENZAPRINE [Concomitant]
     Indication: BACK PAIN
  16. CYCLOBENZAPRINE [Concomitant]
     Indication: MUSCLE SPASMS
  17. NITROGLYCERIN [Concomitant]
     Indication: CHEST PAIN
  18. ASPIRIN [Concomitant]
     Indication: MYOCARDIAL INFARCTION
  19. IBUPROFEN [Concomitant]
     Indication: ARTHRITIS
  20. IBUPROFEN [Concomitant]
     Indication: INFLAMMATION
  21. CALCIUM WITH VITAMIN D [Concomitant]
     Indication: DRUG USE FOR UNKNOWN INDICATION
  22. MULTI-VITAMIN [Concomitant]
     Indication: DRUG USE FOR UNKNOWN INDICATION
  23. L-LYSINE [Concomitant]
     Indication: ORAL HERPES

REACTIONS (6)
  - ABDOMINAL PAIN [None]
  - ANOSMIA [None]
  - HERPES ZOSTER [None]
  - NASAL ODOUR [None]
  - SINUSITIS [None]
  - URINARY TRACT INFECTION [None]
